FAERS Safety Report 24539857 (Version 1)
Quarter: 2024Q4

REPORT INFORMATION
  Report Type: Report from Study
  Country: US (occurrence: US)
  Receive Date: 20241023
  Receipt Date: 20241023
  Transmission Date: 20250115
  Serious: Yes (Other)
  Sender: ABBVIE
  Company Number: US-ABBVIE-5454830

PATIENT
  Age: 44 Year
  Sex: Male

DRUGS (3)
  1. SKYRIZI [Suspect]
     Active Substance: RISANKIZUMAB-RZAA
     Indication: Psoriatic arthropathy
     Dosage: 150 MG/ML INJECT 1 PEN UNDER THE SKIN AT WEEK 0
     Route: 058
     Dates: start: 202307, end: 202307
  2. SKYRIZI [Suspect]
     Active Substance: RISANKIZUMAB-RZAA
     Dosage: 150 MG/ML INJECT 1 PEN UNDER THE SKIN AT WEEK 4 THEN EVERY 12 WEEKS
     Route: 058
     Dates: start: 20230817, end: 20240817
  3. SKYRIZI [Suspect]
     Active Substance: RISANKIZUMAB-RZAA
     Dosage: STRENGTH 150MG/ML
     Route: 058
     Dates: start: 202409

REACTIONS (5)
  - Cerebrovascular accident [Unknown]
  - Renal disorder [Unknown]
  - Musculoskeletal disorder [Unknown]
  - Arthritis [Unknown]
  - Grip strength decreased [Unknown]

NARRATIVE: CASE EVENT DATE: 20230901
